FAERS Safety Report 22052357 (Version 1)
Quarter: 2023Q1

REPORT INFORMATION
  Report Type: Report from Study
  Country: US (occurrence: US)
  Receive Date: 20230302
  Receipt Date: 20230302
  Transmission Date: 20230417
  Serious: Yes (Other)
  Sender: FDA-Public Use
  Company Number: US-JNJFOC-20190809086

PATIENT
  Sex: Male

DRUGS (3)
  1. ABIRATERONE ACETATE [Suspect]
     Active Substance: ABIRATERONE ACETATE
     Indication: Prostate cancer metastatic
     Route: 048
  2. DASATINIB [Suspect]
     Active Substance: DASATINIB
     Indication: Prostate cancer metastatic
     Route: 048
  3. PREDNISONE [Concomitant]
     Active Substance: PREDNISONE
     Indication: Prostate cancer metastatic
     Route: 048

REACTIONS (17)
  - Hypokalaemia [Unknown]
  - Hypertension [Unknown]
  - Aspartate aminotransferase increased [Unknown]
  - Alanine aminotransferase increased [Unknown]
  - Anaemia [Unknown]
  - Constipation [Unknown]
  - Diarrhoea [Unknown]
  - Nausea [Unknown]
  - Dyspepsia [Unknown]
  - Pleural effusion [Unknown]
  - Hyperglycaemia [Unknown]
  - Oedema [Unknown]
  - Dyspnoea [Unknown]
  - Fatigue [Unknown]
  - Headache [Unknown]
  - Insomnia [Unknown]
  - Dizziness [Unknown]
